FAERS Safety Report 7503304-9 (Version None)
Quarter: 2011Q2

REPORT INFORMATION
  Report Type: 
  Country: None (occurrence: None)
  Receive Date: 20110524
  Receipt Date: 20110524
  Transmission Date: 20111010
  Serious: Yes (Other)
  Sender: FDA-Public Use
  Company Number: None

PATIENT
  Sex: Female

DRUGS (1)
  1. BONIVA [Suspect]
     Indication: OSTEOPOROSIS
     Dosage: 1 TABLET ONCE A MONTH PO
     Route: 048
     Dates: start: 20110521, end: 20110521

REACTIONS (2)
  - CHEST PAIN [None]
  - MIDDLE INSOMNIA [None]
